FAERS Safety Report 18895313 (Version 1)
Quarter: 2021Q1

REPORT INFORMATION
  Report Type: Spontaneous
  Country: FR (occurrence: FR)
  Receive Date: 20210216
  Receipt Date: 20210216
  Transmission Date: 20210420
  Serious: Yes (Hospitalization)
  Sender: FDA-Public Use
  Company Number: FR-SUN PHARMACEUTICAL INDUSTRIES LTD-2021RR-281073

PATIENT
  Age: 45 Year
  Sex: Male

DRUGS (3)
  1. PAROXETINE. [Suspect]
     Active Substance: PAROXETINE
     Indication: INTENTIONAL OVERDOSE
     Dosage: NP
     Route: 042
     Dates: start: 20210110, end: 20210110
  2. ARIPIPRAZOLE. [Suspect]
     Active Substance: ARIPIPRAZOLE
     Indication: INTENTIONAL OVERDOSE
     Dosage: NP
     Route: 048
     Dates: start: 20210110, end: 20210110
  3. DIAZEPAM. [Suspect]
     Active Substance: DIAZEPAM
     Indication: INTENTIONAL OVERDOSE
     Dosage: NP
     Route: 048
     Dates: start: 20210110, end: 20210110

REACTIONS (2)
  - Poisoning deliberate [Recovered/Resolved]
  - Somnolence [Recovered/Resolved]

NARRATIVE: CASE EVENT DATE: 20210110
